FAERS Safety Report 10028753 (Version 1)
Quarter: 2014Q1

REPORT INFORMATION
  Report Type: Spontaneous
  Country: US (occurrence: US)
  Receive Date: 20140321
  Receipt Date: 20140321
  Transmission Date: 20141002
  Serious: No
  Sender: FDA-Public Use
  Company Number: US-PFIZER INC-2014082141

PATIENT
  Age: 2 Year
  Sex: Male
  Weight: 11.79 kg

DRUGS (4)
  1. CHILDREN^S MOTRIN [Suspect]
     Indication: TEETHING
     Dosage: 5 ML, EVERY 8 HOURS
     Route: 048
     Dates: end: 20140122
  2. CHILDREN^S MOTRIN [Suspect]
     Indication: PYREXIA
  3. PARACETAMOL [Concomitant]
     Indication: TEETHING
     Dosage: UNK
  4. PARACETAMOL [Concomitant]
     Indication: PYREXIA

REACTIONS (2)
  - Drug ineffective [Unknown]
  - Liquid product physical issue [Unknown]
